FAERS Safety Report 9409546 (Version 1)
Quarter: 2013Q3

REPORT INFORMATION
  Report Type: Spontaneous
  Country: SE (occurrence: SE)
  Receive Date: 20130719
  Receipt Date: 20130719
  Transmission Date: 20140515
  Serious: Yes (Death, Hospitalization, Other)
  Sender: FDA-Public Use
  Company Number: SE-JNJFOC-20130707720

PATIENT
  Sex: 0

DRUGS (8)
  1. CAELYX (DOXORUBICIN HYDROCHLORIDE) [Suspect]
     Indication: PLEURAL MESOTHELIOMA MALIGNANT
     Dosage: IN 250 ML 5% GLUCOSE DURING 1 HOUR, FOR 6 CYCLES, TREATMENT LEVEL A
     Route: 042
  2. CAELYX (DOXORUBICIN HYDROCHLORIDE) [Suspect]
     Indication: PLEURAL MESOTHELIOMA MALIGNANT
     Dosage: IN 250 ML 5% GLUCOSE DURING 1 HOUR, TREATMENT LEVEL C
     Route: 042
  3. CAELYX (DOXORUBICIN HYDROCHLORIDE) [Suspect]
     Indication: PLEURAL MESOTHELIOMA MALIGNANT
     Dosage: IN 250 ML 5% GLUCOSE DURING 1 HOUR, TREATMENT LEVEL B
     Route: 042
  4. GEMCITABINE [Suspect]
     Indication: PLEURAL MESOTHELIOMA MALIGNANT
     Dosage: ON DAY 8, TREATMENT LEVEL A
     Route: 042
  5. GEMCITABINE [Suspect]
     Indication: PLEURAL MESOTHELIOMA MALIGNANT
     Dosage: TREATMENT LEVEL B
     Route: 042
  6. GEMCITABINE [Suspect]
     Indication: PLEURAL MESOTHELIOMA MALIGNANT
     Dosage: TREATMENT LEVEL C
     Route: 042
  7. CARBOPLATIN [Suspect]
     Indication: PLEURAL MESOTHELIOMA MALIGNANT
     Dosage: FOR 6 CYCLES, IN 0.9% NACL DURING 30 MINTUES
     Route: 042
  8. ANTIEMETICS (NOS) [Concomitant]
     Indication: PROPHYLAXIS
     Route: 065

REACTIONS (15)
  - Neutropenic sepsis [Fatal]
  - Pneumonia [Unknown]
  - General physical health deterioration [Unknown]
  - Pleural mesothelioma malignant [Unknown]
  - Febrile neutropenia [Unknown]
  - Thrombocytopenia [Unknown]
  - Leukopenia [Unknown]
  - Anaemia [Unknown]
  - Stomatitis [Unknown]
  - Nausea [Unknown]
  - Alopecia [Unknown]
  - Palmar-plantar erythrodysaesthesia syndrome [Unknown]
  - Off label use [Unknown]
  - Wrong technique in drug usage process [Unknown]
  - Incorrect drug dosage form administered [Unknown]
